FAERS Safety Report 9553778 (Version 2)
Quarter: 2019Q3

REPORT INFORMATION
  Report Type: Report from Study
  Country: PL (occurrence: PL)
  Receive Date: 20130925
  Receipt Date: 20190721
  Transmission Date: 20191005
  Serious: Yes (Hospitalization)
  Sender: FDA-Public Use
  Company Number: PL-UCBSA-098331

PATIENT
  Age: 33 Year
  Sex: Male
  Weight: 89 kg

DRUGS (1)
  1. CERTOLIZUMAB PEGOL VS PLACEBO [Suspect]
     Active Substance: CERTOLIZUMAB PEGOL
     Indication: PSORIATIC ARTHROPATHY
     Dosage: 200 MG
     Route: 058
     Dates: start: 20110110, end: 20130828

REACTIONS (1)
  - Chronic tonsillitis [Recovered/Resolved]

NARRATIVE: CASE EVENT DATE: 20130828
